FAERS Safety Report 17373348 (Version 1)
Quarter: 2020Q1

REPORT INFORMATION
  Report Type: Spontaneous
  Country: PL (occurrence: PL)
  Receive Date: 20200206
  Receipt Date: 20200206
  Transmission Date: 20200409
  Serious: Yes (Hospitalization)
  Sender: FDA-Public Use
  Company Number: PL-TEVA-2020-PL-1181398

PATIENT
  Age: 41 Year
  Sex: Female
  Weight: 55 kg

DRUGS (2)
  1. GEMCITABINE. [Suspect]
     Active Substance: GEMCITABINE
     Route: 042
     Dates: start: 20190206, end: 20190206
  2. GEMCITABINE. [Suspect]
     Active Substance: GEMCITABINE
     Indication: GALLBLADDER CANCER
     Dosage: 1540 MG
     Route: 042
     Dates: start: 20190213, end: 20190213

REACTIONS (5)
  - Vomiting [Recovered/Resolved]
  - Nausea [Recovered/Resolved]
  - Vasculitis [Recovered/Resolved]
  - Abdominal pain [Recovered/Resolved]
  - Generalised oedema [Recovered/Resolved]

NARRATIVE: CASE EVENT DATE: 20190228
